FAERS Safety Report 20147788 (Version 1)
Quarter: 2021Q4

REPORT INFORMATION
  Report Type: Spontaneous
  Country: BE (occurrence: BE)
  Receive Date: 20211203
  Receipt Date: 20211203
  Transmission Date: 20220303
  Serious: Yes (Death, Life-Threatening, Hospitalization, Other)
  Sender: FDA-Public Use
  Company Number: BE-MLMSERVICE-20211117-3217248-1

PATIENT
  Age: 8 Year
  Sex: Male

DRUGS (31)
  1. DOXORUBICIN HYDROCHLORIDE [Suspect]
     Active Substance: DOXORUBICIN HYDROCHLORIDE
     Indication: Metastases to the mediastinum
     Dosage: 25 MG/M2 OVER 1 HR  DAYS 45 BM COURSE
     Route: 042
     Dates: start: 2018, end: 2018
  2. DOXORUBICIN HYDROCHLORIDE [Suspect]
     Active Substance: DOXORUBICIN HYDROCHLORIDE
     Indication: Anaplastic large-cell lymphoma
  3. CYCLOPHOSPHAMIDE [Suspect]
     Active Substance: CYCLOPHOSPHAMIDE
     Indication: Anaplastic large-cell lymphoma
     Dosage: 200 MG/M? OVER 1 HR DAYS 15 BM COURSE
     Route: 042
     Dates: start: 2018, end: 2018
  4. CYCLOPHOSPHAMIDE [Suspect]
     Active Substance: CYCLOPHOSPHAMIDE
     Indication: Metastases to the mediastinum
     Dosage: 200 MG/M? OVER 1 HR DAYS 12 PRE-PHASE
     Route: 042
     Dates: start: 20181122, end: 20181231
  5. ETOPOSIDE [Suspect]
     Active Substance: ETOPOSIDE
     Indication: Anaplastic large-cell lymphoma
     Dosage: 100 MG/M2 OVER 2 HR ON DAYS 4 AND 5
     Route: 042
     Dates: start: 2018
  6. ETOPOSIDE [Suspect]
     Active Substance: ETOPOSIDE
     Indication: Metastases to the mediastinum
  7. IFOSFAMIDE [Suspect]
     Active Substance: IFOSFAMIDE
     Indication: Metastases to the mediastinum
     Dosage: 2 G/M2/DAY CONTINUOUS INFUSION OVER 5 DAYS (DAYS 26) ICM COURSE?THERAPY START DATE:09-FEB-2019 AND
     Route: 042
  8. IFOSFAMIDE [Suspect]
     Active Substance: IFOSFAMIDE
     Indication: Anaplastic large-cell lymphoma
     Dosage: 800 MG/M2 OVER 1 HR DAYS 15 (AM COURSE)
     Route: 042
  9. DEXAMETHASONE [Suspect]
     Active Substance: DEXAMETHASONE
     Indication: Anaplastic large-cell lymphoma
     Dosage: 5 MG/M2 TWICE/DAY  DAYS 35 PRE-PHASE
     Route: 048
     Dates: start: 20181124, end: 20181127
  10. DEXAMETHASONE [Suspect]
     Active Substance: DEXAMETHASONE
     Indication: Metastases to the mediastinum
     Dosage: 5 MG/M2 TWICE/DAY  DAYS 15 BM COURSE
     Route: 048
     Dates: start: 2018, end: 2018
  11. DEXAMETHASONE [Suspect]
     Active Substance: DEXAMETHASONE
     Dosage: 5 MG/M2/DAY  DAYS 12 PRE-PHASE
     Route: 048
     Dates: start: 20181122, end: 20181231
  12. DEXAMETHASONE [Suspect]
     Active Substance: DEXAMETHASONE
     Dosage: 5 MG/M2 TWICE/DAY  DAYS 15 (AM COURSE)
     Route: 048
     Dates: start: 2018
  13. HYDROCORTISONE [Suspect]
     Active Substance: HYDROCORTISONE
     Indication: Metastases to the mediastinum
     Dosage: PRE-PHASE DAY 1
     Route: 037
     Dates: start: 20181122, end: 20181122
  14. HYDROCORTISONE [Suspect]
     Active Substance: HYDROCORTISONE
     Indication: Anaplastic large-cell lymphoma
  15. MITOXANTRONE [Suspect]
     Active Substance: MITOXANTRONE HYDROCHLORIDE
     Indication: Metastases to the mediastinum
     Dosage: 8 MG/M2/DAY OVER 30 MIN (DAYS 1 AND 2)?THERAPY START DATE:08-FEB-2019 AND END DATE:28-FEB-2019
     Route: 042
  16. MITOXANTRONE [Suspect]
     Active Substance: MITOXANTRONE HYDROCHLORIDE
     Indication: Anaplastic large-cell lymphoma
  17. VINBLASTINE [Suspect]
     Active Substance: VINBLASTINE
     Indication: Metastases to the mediastinum
     Dosage: THERAPY START DATE: -FEB-2019 AND END DATE: -MAR-2019
     Route: 042
  18. VINBLASTINE [Suspect]
     Active Substance: VINBLASTINE
     Indication: Anaplastic large-cell lymphoma
  19. CARBOPLATIN [Suspect]
     Active Substance: CARBOPLATIN
     Indication: Metastases to the mediastinum
     Dosage: 200 MG/M2/DAY CONTINUOUS INFUSION OVER 4 DAYS (DAYS 25), THERAPY START DATE: 09-FEB-2019 AND END DA
     Route: 041
  20. CARBOPLATIN [Suspect]
     Active Substance: CARBOPLATIN
     Indication: Anaplastic large-cell lymphoma
  21. XALKORI [Suspect]
     Active Substance: CRIZOTINIB
     Indication: Anaplastic large-cell lymphoma
     Dosage: NASOGASTRIC?THERAPY START DATE: -FEB-2019 AND END DATE: -MAR-2019
     Route: 065
  22. XALKORI [Suspect]
     Active Substance: CRIZOTINIB
     Indication: Metastases to the mediastinum
     Dosage: THERAPY START DATE: 15-FEB-2019 AND END DATE:FEB2019
     Route: 048
  23. CYTARABINE [Suspect]
     Active Substance: CYTARABINE
     Indication: Metastases to the mediastinum
     Dosage: DAY 1 PRE-PHASE
     Route: 037
     Dates: start: 20181122, end: 20181122
  24. CYTARABINE [Suspect]
     Active Substance: CYTARABINE
     Indication: Anaplastic large-cell lymphoma
     Dosage: DAY 1 ICM COUSE (THERAPY START DATE: 08-FEB-2019 AND END DATE: 31-DEC-2019)
     Route: 037
  25. CYTARABINE [Suspect]
     Active Substance: CYTARABINE
     Dosage: 150 MG/M2 OVER 1 HR EVERY 12 HR DAYS 4 AND 5 (AM COURSE)
     Route: 042
     Dates: start: 2018
  26. PREDNISOLONE [Suspect]
     Active Substance: PREDNISOLONE
     Indication: Anaplastic large-cell lymphoma
     Dosage: DAY 1, THERAPY START DATE: 08-FEB-2019
     Route: 037
  27. PREDNISOLONE [Suspect]
     Active Substance: PREDNISOLONE
     Indication: Metastases to the mediastinum
  28. METHOTREXATE [Suspect]
     Active Substance: METHOTREXATE
     Indication: Metastases to the mediastinum
     Dosage: 3 G/M2 OVER 3 HR DAY 1 (BM COURSE)
     Route: 042
     Dates: start: 2018, end: 2018
  29. METHOTREXATE [Suspect]
     Active Substance: METHOTREXATE
     Indication: Anaplastic large-cell lymphoma
     Dosage: 3 G/M2 OVER 3 HR DAY 1 (AM COURSE)
     Route: 042
     Dates: start: 2018
  30. METHOTREXATE [Suspect]
     Active Substance: METHOTREXATE
     Dosage: PRE-PHASE DAY 1
     Route: 037
     Dates: start: 20181122, end: 20181122
  31. METHOTREXATE [Suspect]
     Active Substance: METHOTREXATE
     Dosage: ICM COURSE DAY 1, THERAPY START DATE: 08-FEB-2019
     Route: 037

REACTIONS (16)
  - Myelosuppression [Fatal]
  - Toxicity to various agents [Fatal]
  - Cerebral fungal infection [Fatal]
  - Staphylococcal infection [Fatal]
  - Staphylococcal scalded skin syndrome [Fatal]
  - Pseudomonas infection [Fatal]
  - Bacteraemia [Fatal]
  - Neutropenia [Fatal]
  - Alpha haemolytic streptococcal infection [Fatal]
  - Enterococcal infection [Fatal]
  - Bronchopulmonary aspergillosis [Fatal]
  - Multiple organ dysfunction syndrome [Fatal]
  - Cystitis haemorrhagic [Fatal]
  - Neutropenic colitis [Fatal]
  - Renal failure [Fatal]
  - Mucosal inflammation [Fatal]

NARRATIVE: CASE EVENT DATE: 20190101
